FAERS Safety Report 13836673 (Version 1)
Quarter: 2017Q3

REPORT INFORMATION
  Report Type: Spontaneous
  Country: US (occurrence: US)
  Receive Date: 20170804
  Receipt Date: 20170804
  Transmission Date: 20171127
  Serious: No
  Sender: FDA-Public Use
  Company Number: US-ROCHE-1118736

PATIENT
  Age: 56 Year
  Sex: Female
  Weight: 73.09 kg

DRUGS (1)
  1. BONIVA [Suspect]
     Active Substance: IBANDRONATE SODIUM
     Indication: OSTEOPOROSIS
     Route: 048
     Dates: start: 20050311

REACTIONS (4)
  - Attention deficit/hyperactivity disorder [Unknown]
  - Drug dose omission [Unknown]
  - Memory impairment [Unknown]
  - Body height decreased [Unknown]

NARRATIVE: CASE EVENT DATE: 200506
